FAERS Safety Report 17264275 (Version 1)
Quarter: 2020Q1

REPORT INFORMATION
  Report Type: Spontaneous
  Country: US (occurrence: US)
  Receive Date: 20200113
  Receipt Date: 20200113
  Transmission Date: 20200409
  Serious: Yes (Death, Other)
  Sender: FDA-Public Use
  Company Number: US-AMGEN-USASP2020002704

PATIENT

DRUGS (14)
  1. BLINATUMOMAB [Suspect]
     Active Substance: BLINATUMOMAB
     Indication: ACUTE LYMPHOCYTIC LEUKAEMIA
     Dosage: UNK, CYCLICAL
     Route: 065
  2. INOTUZUMAB OZOGAMICIN [Concomitant]
     Active Substance: INOTUZUMAB OZOGAMICIN
     Dosage: 0.6 MILLIGRAM/SQ. METER, CYCLE 1
  3. CYCLOPHOSPHAMIDE. [Concomitant]
     Active Substance: CYCLOPHOSPHAMIDE
     Dosage: 150 MILLIGRAM/SQ. METER, Q12H
  4. VINCRISTINE [Concomitant]
     Active Substance: VINCRISTINE
     Dosage: 2 MILLIGRAM
  5. INOTUZUMAB OZOGAMICIN [Concomitant]
     Active Substance: INOTUZUMAB OZOGAMICIN
     Dosage: 0.3 MILLIGRAM/SQ. METER
  6. INOTUZUMAB OZOGAMICIN [Concomitant]
     Active Substance: INOTUZUMAB OZOGAMICIN
     Dosage: 1.3-1.8 MILLIGRAM/SQ. METER, CYCLE 1
  7. METHOTREXATE. [Concomitant]
     Active Substance: METHOTREXATE
     Dosage: 250 MICROGRAM/SQ. METER
  8. RITUXIMAB. [Concomitant]
     Active Substance: RITUXIMAB
  9. CYTARABINE. [Concomitant]
     Active Substance: CYTARABINE
     Dosage: 0.5 GRAM PER SQUARE METRE, Q12H
  10. INOTUZUMAB OZOGAMICIN [Concomitant]
     Active Substance: INOTUZUMAB OZOGAMICIN
     Dosage: 0.3 MILLIGRAM/SQ. METER, CYCLE 1
  11. DEXAMETHASONE. [Concomitant]
     Active Substance: DEXAMETHASONE
     Dosage: 20 MILLIGRAM
  12. INOTUZUMAB OZOGAMICIN [Concomitant]
     Active Substance: INOTUZUMAB OZOGAMICIN
     Dosage: 1.0-1.3 MILLIGRAM/SQ. METER
  13. INOTUZUMAB OZOGAMICIN [Concomitant]
     Active Substance: INOTUZUMAB OZOGAMICIN
     Dosage: 0.3 MILLIGRAM/SQ. METER
  14. URSODIOL. [Concomitant]
     Active Substance: URSODIOL

REACTIONS (5)
  - Sepsis [Fatal]
  - Death [Fatal]
  - Acute lymphocytic leukaemia recurrent [Unknown]
  - Venoocclusive disease [Fatal]
  - Pneumonia [Fatal]
